FAERS Safety Report 20807225 (Version 2)
Quarter: 2022Q2

REPORT INFORMATION
  Report Type: Spontaneous
  Country: BE (occurrence: BE)
  Receive Date: 20220510
  Receipt Date: 20220512
  Transmission Date: 20220721
  Serious: Yes (Other)
  Sender: FDA-Public Use
  Company Number: BE-BAYER-2022A062900

PATIENT
  Age: 71 Year
  Sex: Female

DRUGS (1)
  1. EYLEA [Suspect]
     Active Substance: AFLIBERCEPT
     Indication: Neovascular age-related macular degeneration
     Dosage: UNK
     Route: 031

REACTIONS (4)
  - Macular hole [Unknown]
  - Retinal cyst [Unknown]
  - Visual field defect [Unknown]
  - Vitreous detachment [Unknown]
